FAERS Safety Report 5637045-X (Version None)
Quarter: 2008Q1

REPORT INFORMATION
  Report Type: 
  Country: None (occurrence: None)
  Receive Date: 20080225
  Receipt Date: 20070709
  Transmission Date: 20080703
  Serious: No
  Sender: FDA-Public Use
  Company Number: US-BRISTOL-MYERS SQUIBB COMPANY-13838438

PATIENT
  Sex: Male
  Weight: 81 kg

DRUGS (1)
  1. GLUCOPHAGE [Suspect]
     Dates: start: 20070702

REACTIONS (2)
  - SNEEZING [None]
  - WHEEZING [None]
